FAERS Safety Report 20106861 (Version 3)
Quarter: 2021Q4

REPORT INFORMATION
  Report Type: Report from Study
  Country: MX (occurrence: MX)
  Receive Date: 20211124
  Receipt Date: 20211222
  Transmission Date: 20220303
  Serious: Yes (Other)
  Sender: FDA-Public Use
  Company Number: MX-NOVARTISPH-NVSC2021MX267928

PATIENT
  Sex: Female
  Weight: 58 kg

DRUGS (3)
  1. ACLASTA [Suspect]
     Active Substance: ZOLEDRONIC ACID
     Indication: Osteoporosis
     Dosage: 5 MG, Q12MO (ANNUALLY)
     Route: 042
     Dates: start: 2016
  2. ACLASTA [Suspect]
     Active Substance: ZOLEDRONIC ACID
     Dosage: 1 DF, (STARTED 7 TO 8 YEARS AGO)
     Route: 042
     Dates: end: 201912
  3. SERTRALINE HYDROCHLORIDE [Suspect]
     Active Substance: SERTRALINE HYDROCHLORIDE
     Indication: Serotonin deficiency
     Dosage: 50 MG, QD
     Route: 048
     Dates: start: 202111

REACTIONS (12)
  - Facial bones fracture [Unknown]
  - Rib fracture [Unknown]
  - Tooth loss [Unknown]
  - Tooth disorder [Unknown]
  - Bone loss [Unknown]
  - Device failure [Unknown]
  - Blood uric acid increased [Unknown]
  - Fall [Unknown]
  - Anger [Unknown]
  - Headache [Unknown]
  - Nausea [Unknown]
  - Drug intolerance [Unknown]

NARRATIVE: CASE EVENT DATE: 20180101
